FAERS Safety Report 6799871-3 (Version None)
Quarter: 2010Q2

REPORT INFORMATION
  Report Type: 
  Country: None (occurrence: None)
  Receive Date: 20100615
  Receipt Date: 20100601
  Transmission Date: 20101027
  Serious: Yes (Other)
  Sender: FDA-Public Use
  Company Number: 2010SP024293

PATIENT
  Age: 39 Year
  Sex: Female
  Weight: 53 kg

DRUGS (6)
  1. NUVARING [Suspect]
     Indication: CONTRACEPTION
     Dosage: VAG
     Route: 067
     Dates: start: 20100201
  2. COENZYME Q10 /00517201/ [Concomitant]
  3. L-CARNITINE [Concomitant]
  4. VITAMIN C /00008001/ [Concomitant]
  5. ALENDRONATE SODIUM [Concomitant]
  6. LEVOTHYROXINE SODIUM [Concomitant]

REACTIONS (7)
  - ANAEMIA [None]
  - DEVICE EXPULSION [None]
  - MEDICAL DEVICE DISCOMFORT [None]
  - MELAS SYNDROME [None]
  - MITOCHONDRIAL MYOPATHY [None]
  - OSTEOPOROSIS [None]
  - VULVOVAGINAL DISCOMFORT [None]
